FAERS Safety Report 5180179-7 (Version None)
Quarter: 2006Q4

REPORT INFORMATION
  Report Type: 
  Country: None (occurrence: None)
  Receive Date: 20061212
  Receipt Date: 20061201
  Transmission Date: 20070319
  Serious: Yes (Life-Threatening)
  Sender: FDA-Public Use
  Company Number: GXKR2006GB07821

PATIENT
  Age: 64 Year
  Sex: Male
  Weight: 80 kg

DRUGS (4)
  1. METRONIDAZOLE [Suspect]
     Indication: GASTROENTERITIS
     Dosage: 400 MG, ORAL
     Route: 048
     Dates: start: 20061025, end: 20061028
  2. ATORVASTATIN CALCIUM [Suspect]
  3. MIXTARD PORK (INSULIN PORCINE) [Concomitant]
  4. TAMSULOSIN HCL [Concomitant]

REACTIONS (1)
  - HYPOGLYCAEMIA [None]
